FAERS Safety Report 15802710 (Version 2)
Quarter: 2019Q1

REPORT INFORMATION
  Report Type: Spontaneous
  Country: JP (occurrence: JP)
  Receive Date: 20190109
  Receipt Date: 20190110
  Transmission Date: 20190417
  Serious: Yes (Death)
  Sender: FDA-Public Use
  Company Number: JP-ELI_LILLY_AND_COMPANY-JP201705009218

PATIENT
  Age: 49 Year
  Sex: Female
  Weight: 91 kg

DRUGS (12)
  1. TETRAMIDE [Concomitant]
     Active Substance: MIANSERIN
     Indication: PRODUCT USED FOR UNKNOWN INDICATION
  2. CYMBALTA [Concomitant]
     Active Substance: DULOXETINE HYDROCHLORIDE
     Indication: PRODUCT USED FOR UNKNOWN INDICATION
  3. SEDIEL [Concomitant]
     Active Substance: TANDOSPIRONE
     Indication: PRODUCT USED FOR UNKNOWN INDICATION
  4. BELSOMRA [Concomitant]
     Active Substance: SUVOREXANT
     Indication: PRODUCT USED FOR UNKNOWN INDICATION
  5. ZYPREXA [Suspect]
     Active Substance: OLANZAPINE
     Indication: SCHIZOPHRENIA
     Dosage: 20 MG, DAILY
     Route: 048
     Dates: end: 20170416
  6. ISALON [Concomitant]
     Active Substance: UNSPECIFIED INGREDIENT
     Indication: PRODUCT USED FOR UNKNOWN INDICATION
  7. ZYPREXA [Suspect]
     Active Substance: OLANZAPINE
     Indication: DEPRESSION
  8. BENZALIN                           /00036201/ [Concomitant]
     Active Substance: NITRAZEPAM
     Indication: PRODUCT USED FOR UNKNOWN INDICATION
  9. TOVIAZ [Concomitant]
     Active Substance: FESOTERODINE FUMARATE
     Indication: PRODUCT USED FOR UNKNOWN INDICATION
  10. AMITIZA [Concomitant]
     Active Substance: LUBIPROSTONE
     Indication: PRODUCT USED FOR UNKNOWN INDICATION
  11. HORAMINE [Concomitant]
     Indication: PRODUCT USED FOR UNKNOWN INDICATION
  12. PERIACTIN [Concomitant]
     Active Substance: CYPROHEPTADINE HYDROCHLORIDE
     Indication: PRODUCT USED FOR UNKNOWN INDICATION

REACTIONS (2)
  - Diabetic ketoacidosis [Fatal]
  - Weight increased [Unknown]
